FAERS Safety Report 6426716-3 (Version None)
Quarter: 2009Q4

REPORT INFORMATION
  Report Type: 
  Country: None (occurrence: None)
  Receive Date: 20091104
  Receipt Date: 20091028
  Transmission Date: 20100525
  Serious: Yes (Disabling)
  Sender: FDA-Public Use
  Company Number: US-ELI_LILLY_AND_COMPANY-US200910007169

PATIENT
  Sex: Female

DRUGS (2)
  1. HUMULIN N [Suspect]
     Dosage: UNK, UNK
     Dates: start: 20020101
  2. HUMULIN R [Suspect]
     Dosage: UNK, UNK
     Dates: start: 20020101

REACTIONS (2)
  - BLINDNESS [None]
  - GLAUCOMA [None]
